FAERS Safety Report 4886409-0 (Version None)
Quarter: 2006Q1

REPORT INFORMATION
  Report Type: 
  Country: None (occurrence: None)
  Receive Date: 20060120
  Receipt Date: 20060109
  Transmission Date: 20060701
  Serious: Yes (Hospitalization, Other)
  Sender: FDA-Public Use
  Company Number: US-MERCK-0601USA01198

PATIENT
  Age: 49 Year
  Sex: Female
  Weight: 80 kg

DRUGS (7)
  1. VIOXX [Suspect]
     Indication: SYSTEMIC LUPUS ERYTHEMATOSUS
     Route: 048
     Dates: start: 19990601, end: 20041001
  2. LOPRESSOR [Concomitant]
     Route: 065
  3. PLAQUENIL [Concomitant]
     Route: 065
  4. PLAVIX [Concomitant]
     Route: 065
  5. GLUCOPHAGE [Concomitant]
     Route: 065
  6. HYZAAR [Concomitant]
     Route: 065
  7. POTASSIUM (UNSPECIFIED) [Concomitant]
     Route: 065

REACTIONS (4)
  - ARTERIAL OCCLUSIVE DISEASE [None]
  - CHEST PAIN [None]
  - DYSPNOEA [None]
  - MYOCARDIAL INFARCTION [None]
